FAERS Safety Report 5226424-0 (Version None)
Quarter: 2007Q1

REPORT INFORMATION
  Report Type: 
  Country: None (occurrence: None)
  Receive Date: 20070201
  Receipt Date: 20070120
  Transmission Date: 20070707
  Serious: Yes (Death)
  Sender: FDA-Public Use
  Company Number: US-ELI_LILLY_AND_COMPANY-US200605003104

PATIENT
  Age: 82 Year
  Sex: Female
  Weight: 53.061 kg

DRUGS (1)
  1. FORTEO [Suspect]
     Indication: OSTEOPOROSIS
     Dosage: 20 UG, DAILY (1/D)
     Dates: start: 20060421

REACTIONS (6)
  - DIARRHOEA [None]
  - GROIN PAIN [None]
  - OVARIAN CANCER [None]
  - PAIN [None]
  - PAIN IN EXTREMITY [None]
  - VIRAL INFECTION [None]
